FAERS Safety Report 11905468 (Version 1)
Quarter: 2016Q1

REPORT INFORMATION
  Report Type: Spontaneous
  Country: US (occurrence: US)
  Receive Date: 20160109
  Receipt Date: 20160109
  Transmission Date: 20160526
  Serious: No
  Sender: FDA-Public Use
  Company Number: US-JNJFOC-20151014070

PATIENT
  Sex: Male

DRUGS (8)
  1. INVEGA [Suspect]
     Active Substance: PALIPERIDONE
     Indication: SLEEP APNOEA SYNDROME
     Route: 048
     Dates: start: 2010
  2. INVEGA [Suspect]
     Active Substance: PALIPERIDONE
     Indication: SLEEP APNOEA SYNDROME
     Route: 048
     Dates: end: 20100629
  3. RISPERDAL [Suspect]
     Active Substance: RISPERIDONE
     Indication: SLEEP APNOEA SYNDROME
     Route: 048
     Dates: end: 2006
  4. INVEGA [Suspect]
     Active Substance: PALIPERIDONE
     Indication: ABNORMAL BEHAVIOUR
     Route: 048
     Dates: end: 20100629
  5. RISPERDAL [Suspect]
     Active Substance: RISPERIDONE
     Indication: SLEEP APNOEA SYNDROME
     Route: 048
     Dates: start: 2004
  6. RISPERDAL [Suspect]
     Active Substance: RISPERIDONE
     Indication: ABNORMAL BEHAVIOUR
     Route: 048
     Dates: end: 2006
  7. RISPERDAL [Suspect]
     Active Substance: RISPERIDONE
     Indication: ABNORMAL BEHAVIOUR
     Route: 048
     Dates: start: 2004
  8. INVEGA [Suspect]
     Active Substance: PALIPERIDONE
     Indication: ABNORMAL BEHAVIOUR
     Route: 048
     Dates: start: 2010

REACTIONS (4)
  - Gynaecomastia [Unknown]
  - Product use issue [Unknown]
  - Off label use [Unknown]
  - Abnormal weight gain [Unknown]

NARRATIVE: CASE EVENT DATE: 2010
